FAERS Safety Report 9780651 (Version 2)
Quarter: 2014Q1

REPORT INFORMATION
  Report Type: Spontaneous
  Country: DE (occurrence: DE)
  Receive Date: 20131224
  Receipt Date: 20140226
  Transmission Date: 20141002
  Serious: Yes (Death, Hospitalization)
  Sender: FDA-Public Use
  Company Number: DE-JNJFOC-20131211451

PATIENT
  Age: 87 Year
  Sex: Male

DRUGS (5)
  1. XARELTO [Suspect]
     Indication: CEREBROVASCULAR ACCIDENT PROPHYLAXIS
     Route: 048
     Dates: start: 20131201, end: 20131205
  2. XARELTO [Suspect]
     Indication: ATRIAL FIBRILLATION
     Route: 048
     Dates: start: 20131201, end: 20131205
  3. DIGITOXIN [Concomitant]
     Route: 048
  4. MOLSIDOMIN [Concomitant]
     Route: 048
  5. METOPROLOL SUCCINATE [Concomitant]
     Route: 048

REACTIONS (3)
  - Sudden death [Fatal]
  - Acute coronary syndrome [Unknown]
  - Atrial fibrillation [Unknown]
